FAERS Safety Report 9671966 (Version 2)
Quarter: 2013Q4

REPORT INFORMATION
  Report Type: Spontaneous
  Country: US (occurrence: US)
  Receive Date: 20131106
  Receipt Date: 20131106
  Transmission Date: 20140711
  Serious: Yes (Hospitalization)
  Sender: FDA-Public Use
  Company Number: CHPA2013US016067

PATIENT
  Age: 45 Year
  Sex: Female

DRUGS (1)
  1. EX-LAX REG STR CHOCOLATED LAX PCS SEN [Suspect]
     Dosage: 1 WHOLE BAR, ONCE/SINGLE
     Route: 048
     Dates: start: 20131021, end: 20131021

REACTIONS (1)
  - Overdose [Unknown]
